FAERS Safety Report 8305115-3 (Version None)
Quarter: 2012Q2

REPORT INFORMATION
  Report Type: 
  Country: None (occurrence: None)
  Receive Date: 20120423
  Receipt Date: 20120416
  Transmission Date: 20120825
  Serious: Yes (Other)
  Sender: FDA-Public Use
  Company Number: US-ASTRAZENECA-2012SE07516

PATIENT
  Age: 43 Year
  Sex: Male
  Weight: 102.1 kg

DRUGS (5)
  1. NEXIUM [Suspect]
     Indication: HIATUS HERNIA
     Route: 048
     Dates: start: 20041102
  2. NEXIUM [Suspect]
     Indication: GASTROOESOPHAGEAL REFLUX DISEASE
     Route: 048
     Dates: start: 20041102
  3. NEXIUM [Suspect]
     Indication: DYSPEPSIA
     Route: 048
     Dates: start: 20041102
  4. NEXIUM [Suspect]
     Indication: EPIGASTRIC DISCOMFORT
     Route: 048
     Dates: start: 20041102
  5. PERCOCET [Concomitant]
     Indication: ROAD TRAFFIC ACCIDENT

REACTIONS (3)
  - OFF LABEL USE [None]
  - ROAD TRAFFIC ACCIDENT [None]
  - ANKLE FRACTURE [None]
